FAERS Safety Report 13717356 (Version 1)
Quarter: 2017Q3

REPORT INFORMATION
  Report Type: Spontaneous
  Country: TR (occurrence: TR)
  Receive Date: 20170705
  Receipt Date: 20170705
  Transmission Date: 20171127
  Serious: Yes (Death, Congenital Anomaly, Other)
  Sender: FDA-Public Use
  Company Number: TR-ABBVIE-11P-161-0705731-00

PATIENT
  Age: 1 Day
  Sex: Female

DRUGS (1)
  1. VALPROATE SODIUM. [Suspect]
     Active Substance: VALPROATE SODIUM
     Indication: MATERNAL EXPOSURE TIMING UNSPECIFIED
     Route: 064

REACTIONS (27)
  - Craniosynostosis [Unknown]
  - Ebstein^s anomaly [Unknown]
  - Pulmonary artery stenosis congenital [Unknown]
  - Low set ears [Unknown]
  - Microphthalmos [Unknown]
  - Pectus excavatum [Unknown]
  - Congenital cardiovascular anomaly [Unknown]
  - Right ventricular hypertrophy [Unknown]
  - Congenital joint malformation [Unknown]
  - Skull malformation [Unknown]
  - Renal hypoplasia [Unknown]
  - Atrial septal defect [Unknown]
  - Congenital nose malformation [Unknown]
  - Arachnodactyly [Unknown]
  - Camptodactyly congenital [Unknown]
  - Foetal exposure during pregnancy [Unknown]
  - Dysmorphism [Unknown]
  - Coarctation of the aorta [Unknown]
  - Respiratory distress [Fatal]
  - Foetal anticonvulsant syndrome [Unknown]
  - Cardiomegaly [Unknown]
  - Congenital cystic kidney disease [Unknown]
  - Hydrocephalus [Unknown]
  - Hypotonia [Unknown]
  - Micrognathia [Unknown]
  - Optic nerve hypoplasia [Unknown]
  - Limb malformation [Unknown]
